FAERS Safety Report 10463407 (Version 1)
Quarter: 2014Q3

REPORT INFORMATION
  Report Type: Spontaneous
  Country: US (occurrence: None)
  Receive Date: 20140918
  Receipt Date: 20140918
  Transmission Date: 20150326
  Serious: No
  Sender: FDA-Public Use
  Company Number: None

PATIENT
  Age: 08 Year
  Sex: Female
  Weight: 27 kg

DRUGS (12)
  1. ROPIVACAINE [Suspect]
     Active Substance: ROPIVACAINE
  2. METHOCARBAMOL. [Concomitant]
     Active Substance: METHOCARBAMOL
  3. VIGABATRIN [Concomitant]
     Active Substance: VIGABATRIN
  4. HYDROMORPHONE [Suspect]
     Active Substance: HYDROMORPHONE
  5. KETOROLAC [Concomitant]
     Active Substance: KETOROLAC\KETOROLAC TROMETHAMINE
  6. SENNA [Concomitant]
     Active Substance: SENNA LEAF\SENNOSIDES\SENNOSIDES A AND B
  7. ACETAMINOPHEN. [Concomitant]
     Active Substance: ACETAMINOPHEN
  8. CEFAZOLIN [Concomitant]
     Active Substance: CEFAZOLIN
  9. DOCUSATE [Concomitant]
     Active Substance: DOCUSATE
  10. DIPHENHYDRAMINE [Concomitant]
     Active Substance: DIPHENHYDRAMINE
  11. ZOFRAN [Concomitant]
     Active Substance: ONDANSETRON HYDROCHLORIDE
  12. CLOBAZAM [Concomitant]
     Active Substance: CLOBAZAM

REACTIONS (5)
  - Agitation [None]
  - Discomfort [None]
  - Incorrect dose administered [None]
  - Wrong technique in drug usage process [None]
  - Device infusion issue [None]

NARRATIVE: CASE EVENT DATE: 20140830
